FAERS Safety Report 23091697 (Version 5)
Quarter: 2024Q1

REPORT INFORMATION
  Report Type: Spontaneous
  Country: JP (occurrence: JP)
  Receive Date: 20231020
  Receipt Date: 20240216
  Transmission Date: 20240410
  Serious: Yes (Hospitalization, Other)
  Sender: FDA-Public Use
  Company Number: JP-MSD-M2023-43923

PATIENT
  Age: 73 Year
  Sex: Female

DRUGS (2)
  1. KEYTRUDA [Suspect]
     Active Substance: PEMBROLIZUMAB
     Indication: Uterine cancer
     Dosage: 200 MILLIGRAM, Q3W
     Route: 041
     Dates: start: 20230928, end: 20230928
  2. LENVATINIB MESYLATE [Suspect]
     Active Substance: LENVATINIB MESYLATE
     Indication: Uterine cancer
     Dosage: 20 MILLIGRAM, QD
     Route: 048
     Dates: start: 20230928, end: 20231003

REACTIONS (14)
  - Brain oedema [Recovered/Resolved]
  - Altered state of consciousness [Recovered/Resolved]
  - Pseudomonal sepsis [Recovered/Resolved]
  - Enterococcal sepsis [Recovered/Resolved]
  - Cardiac failure [Not Recovered/Not Resolved]
  - Diabetes mellitus [Recovering/Resolving]
  - Myocarditis [Recovered/Resolved]
  - Platelet count decreased [Recovered/Resolved]
  - Immune-mediated hypothyroidism [Recovered/Resolved]
  - Electrolyte imbalance [Recovered/Resolved]
  - Fall [Recovered/Resolved]
  - Anger [Recovered/Resolved]
  - Dysphonia [Recovered/Resolved]
  - Dehydration [Recovering/Resolving]

NARRATIVE: CASE EVENT DATE: 20231002
